FAERS Safety Report 7925374-6 (Version None)
Quarter: 2011Q4

REPORT INFORMATION
  Report Type: 
  Country: None (occurrence: None)
  Receive Date: 20111118
  Receipt Date: 20110405
  Transmission Date: 20120403
  Serious: No
  Sender: FDA-Public Use
  Company Number: US-AMGEN-USASP2011018209

PATIENT
  Sex: Female

DRUGS (2)
  1. ENBREL [Suspect]
  2. ENBREL [Suspect]
     Indication: RHEUMATOID ARTHRITIS

REACTIONS (6)
  - MALAISE [None]
  - FATIGUE [None]
  - OROPHARYNGEAL PAIN [None]
  - COUGH [None]
  - DYSPHONIA [None]
  - RHINORRHOEA [None]
